FAERS Safety Report 17918557 (Version 1)
Quarter: 2020Q2

REPORT INFORMATION
  Report Type: Spontaneous
  Country: US (occurrence: US)
  Receive Date: 20200619
  Receipt Date: 20200619
  Transmission Date: 20200714
  Serious: Yes (Other)
  Sender: FDA-Public Use
  Company Number: US-GILEAD-2020-0468535

PATIENT
  Age: 59 Year
  Sex: Female
  Weight: 84.1 kg

DRUGS (35)
  1. LEVOPHED [Concomitant]
     Active Substance: NOREPINEPHRINE BITARTRATE
  2. POTASSIUM CHLORIDE. [Concomitant]
     Active Substance: POTASSIUM CHLORIDE
  3. ANCEF [CEFTRIAXONE SODIUM] [Concomitant]
  4. CONVALESCENT PLASMA [Concomitant]
     Active Substance: HUMAN PLASMA
     Dosage: UNK
     Dates: start: 20200513
  5. HYDROMORPHONE [Concomitant]
     Active Substance: HYDROMORPHONE
  6. TITRALAC [CALCIUM CARBONATE] [Concomitant]
  7. FENTANYL. [Concomitant]
     Active Substance: FENTANYL
  8. LASIX [Concomitant]
     Active Substance: FUROSEMIDE
  9. PROPOFOL. [Concomitant]
     Active Substance: PROPOFOL
  10. AMIDATE [ETOMIDATE] [Concomitant]
  11. PROTONIX [OMEPRAZOLE] [Concomitant]
     Active Substance: OMEPRAZOLE
  12. ROCEPHIN [Concomitant]
     Active Substance: CEFTRIAXONE SODIUM
  13. REMDESIVIR. [Suspect]
     Active Substance: REMDESIVIR
     Indication: PRODUCT USED FOR UNKNOWN INDICATION
     Dosage: 200 MG, ONCE
     Route: 042
     Dates: start: 20200512, end: 20200512
  14. VITAMIN D3 [Concomitant]
     Active Substance: CHOLECALCIFEROL
  15. BENADRYL [Concomitant]
     Active Substance: DIPHENHYDRAMINE HYDROCHLORIDE
  16. QUELICIN [Concomitant]
     Active Substance: SUCCINYLCHOLINE CHLORIDE
  17. HUMALOG [Concomitant]
     Active Substance: INSULIN LISPRO
  18. REMDESIVIR. [Suspect]
     Active Substance: REMDESIVIR
     Dosage: 100 MG, QD
     Route: 042
     Dates: start: 20200513, end: 20200518
  19. SEROQUEL [Concomitant]
     Active Substance: QUETIAPINE FUMARATE
  20. CALCIUM GLUCONATE. [Concomitant]
     Active Substance: CALCIUM GLUCONATE
  21. MIRALAX [Concomitant]
     Active Substance: POLYETHYLENE GLYCOL 3350
  22. MAGNESIUM SULFATE. [Concomitant]
     Active Substance: MAGNESIUM SULFATE
  23. HUMULIN NOS [Concomitant]
     Active Substance: INSULIN HUMAN
  24. FLAGYL [Concomitant]
     Active Substance: METRONIDAZOLE\METRONIDAZOLE HYDROCHLORIDE
  25. VANCOMYCIN [Concomitant]
     Active Substance: VANCOMYCIN
  26. ZENPEP [Concomitant]
     Active Substance: PANCRELIPASE AMYLASE\PANCRELIPASE LIPASE\PANCRELIPASE PROTEASE
  27. LOVENOX [Concomitant]
     Active Substance: ENOXAPARIN SODIUM
  28. CLOZARIL [Concomitant]
     Active Substance: CLOZAPINE
  29. LEVAQUIN [Concomitant]
     Active Substance: LEVOFLOXACIN
  30. ZOFRAN [Concomitant]
     Active Substance: ONDANSETRON HYDROCHLORIDE
  31. VERSED [Concomitant]
     Active Substance: MIDAZOLAM HYDROCHLORIDE
  32. PRILOSEC [Concomitant]
     Active Substance: OMEPRAZOLE MAGNESIUM
  33. ACETAMINOPHEN. [Concomitant]
     Active Substance: ACETAMINOPHEN
  34. POTASSIUM BICARBONATE. [Concomitant]
     Active Substance: POTASSIUM BICARBONATE
  35. ZEMURON [Concomitant]
     Active Substance: ROCURONIUM BROMIDE

REACTIONS (3)
  - Aspartate aminotransferase increased [Recovered/Resolved]
  - Haematochezia [Unknown]
  - Gastrointestinal haemorrhage [Unknown]

NARRATIVE: CASE EVENT DATE: 20200514
